FAERS Safety Report 8851344 (Version 1)
Quarter: 2012Q4

REPORT INFORMATION
  Report Type: 
  Country: US (occurrence: US)
  Receive Date: 20121022
  Receipt Date: 20121022
  Transmission Date: 20130627
  Serious: Yes (Hospitalization)
  Sender: FDA-Public Use
  Company Number: US-AMGEN-USASP2012065925

PATIENT
  Age: 64 Year
  Sex: Female

DRUGS (1)
  1. PROCRIT [Suspect]
     Indication: RENAL FAILURE CHRONIC
     Dosage: UNK

REACTIONS (2)
  - Hospitalisation [Unknown]
  - Transfusion [Unknown]
